FAERS Safety Report 19280784 (Version 1)
Quarter: 2021Q2

REPORT INFORMATION
  Report Type: Spontaneous
  Country: JP (occurrence: JP)
  Receive Date: 20210521
  Receipt Date: 20210521
  Transmission Date: 20210717
  Serious: Yes (Other)
  Sender: FDA-Public Use
  Company Number: JP-MICRO LABS LIMITED-ML2021-01588

PATIENT
  Age: 72 Year
  Sex: Male

DRUGS (5)
  1. 5?FLUOROURACIL [Concomitant]
     Active Substance: FLUOROURACIL
     Indication: SQUAMOUS CELL CARCINOMA
     Dosage: FIVE CYCLES EVERY THREE WEEKS FOR THREE MONTHS PRIOR TO THE CONSULTATION.
     Route: 042
  2. CETUXIMAB. [Concomitant]
     Active Substance: CETUXIMAB
     Indication: SQUAMOUS CELL CARCINOMA
     Dosage: FIVE CYCLES EVERY THREE WEEKS FOR THREE MONTHS PRIOR TO THE CONSULTATION.
     Route: 042
  3. CISPLATIN. [Concomitant]
     Active Substance: CISPLATIN
     Indication: SQUAMOUS CELL CARCINOMA
     Dosage: FIVE CYCLES EVERY THREE WEEKS FOR THREE MONTHS PRIOR TO THE CONSULTATION.
     Route: 042
  4. LANDIOLOL [Suspect]
     Active Substance: LANDIOLOL
     Indication: SUPRAVENTRICULAR TACHYCARDIA
     Route: 042
  5. VERAPAMIL HYDROCHLORIDE. [Suspect]
     Active Substance: VERAPAMIL HYDROCHLORIDE
     Indication: SUPRAVENTRICULAR TACHYCARDIA
     Route: 042

REACTIONS (1)
  - Drug ineffective [Unknown]
